FAERS Safety Report 5655420-4 (Version None)
Quarter: 2008Q1

REPORT INFORMATION
  Report Type: 
  Country: None (occurrence: None)
  Receive Date: 20080307
  Receipt Date: 20080227
  Transmission Date: 20080703
  Serious: Yes (Hospitalization)
  Sender: FDA-Public Use
  Company Number: PHHO2008CA00613

PATIENT
  Age: 53 Year
  Sex: Male
  Weight: 60.4 kg

DRUGS (4)
  1. RAD001 VS PLACEBO [Suspect]
     Indication: CARCINOID TUMOUR
     Dosage: DOUBLE BLIND
     Dates: start: 20071109, end: 20071207
  2. RAD001 VS PLACEBO [Suspect]
     Dosage: DOUBLE BLIND, REDUCED DOSE (HALF)
     Route: 048
  3. SANDOSTATIN LAR [Suspect]
     Indication: CARCINOID TUMOUR
     Dosage: UNK, UNK
     Dates: start: 20070701, end: 20071027
  4. SANDOSTATIN LAR [Suspect]
     Dosage: 30 MG
     Route: 030
     Dates: start: 20071207, end: 20071207

REACTIONS (11)
  - BLOOD PRESSURE DECREASED [None]
  - BODY TEMPERATURE INCREASED [None]
  - CHILLS [None]
  - ELECTROLYTE IMBALANCE [None]
  - FEBRILE NEUTROPENIA [None]
  - HAEMOGLOBIN DECREASED [None]
  - MALAISE [None]
  - PANCYTOPENIA [None]
  - PRODUCTIVE COUGH [None]
  - SEPSIS [None]
  - VOMITING [None]
